FAERS Safety Report 6437618-0 (Version None)
Quarter: 2009Q4

REPORT INFORMATION
  Report Type: 
  Country: None (occurrence: None)
  Receive Date: 20091112
  Receipt Date: 20091106
  Transmission Date: 20100525
  Serious: Yes (Hospitalization, Congenital Anomaly)
  Sender: FDA-Public Use
  Company Number: A0679341A

PATIENT
  Sex: Male
  Weight: 3.1 kg

DRUGS (6)
  1. PAXIL [Suspect]
     Indication: DEPRESSION
     Dosage: 10MG PER DAY
     Dates: start: 20050601, end: 20050901
  2. PAROXETINE HYDROCHLORIDE [Suspect]
     Indication: DEPRESSION
     Dosage: 10MG PER DAY
  3. PAROXETINE HYDROCHLORIDE [Suspect]
     Dosage: 10MG PER DAY
  4. VITAMIN AND MINERAL PRENATAL SUPPLEMENT W/ FOLIC ACID CAP [Concomitant]
  5. IRON [Concomitant]
  6. BRETHINE [Concomitant]

REACTIONS (12)
  - ATRIAL SEPTAL DEFECT [None]
  - CARDIAC MURMUR [None]
  - COGNITIVE DISORDER [None]
  - CONGENITAL ANOMALY [None]
  - CRYPTORCHISM [None]
  - DRUG EXPOSURE DURING PREGNANCY [None]
  - EMOTIONAL DISTRESS [None]
  - MATERNAL DRUGS AFFECTING FOETUS [None]
  - PERSISTENT FOETAL CIRCULATION [None]
  - PREMATURE LABOUR [None]
  - PULMONARY VALVE STENOSIS CONGENITAL [None]
  - TACHYPNOEA [None]
